FAERS Safety Report 5931274-3 (Version None)
Quarter: 2008Q4

REPORT INFORMATION
  Report Type: 
  Country: None (occurrence: None)
  Receive Date: 20081027
  Receipt Date: 20081013
  Transmission Date: 20090506
  Serious: Yes (Other)
  Sender: FDA-Public Use
  Company Number: BR-AVENTIS-200614673EU

PATIENT
  Age: 30 Year
  Sex: Female
  Weight: 59 kg

DRUGS (25)
  1. AMPLICTIL                          /00011901/ [Suspect]
     Indication: INSOMNIA
     Route: 048
     Dates: start: 20071001, end: 20081008
  2. FENERGAN                           /00033001/ [Suspect]
     Route: 048
     Dates: start: 20000101, end: 20080101
  3. FENERGAN                           /00033001/ [Suspect]
     Route: 048
     Dates: start: 20080301, end: 20080401
  4. FENERGAN                           /00033001/ [Suspect]
     Indication: INSOMNIA
     Route: 048
     Dates: start: 20000101, end: 20080101
  5. FENERGAN                           /00033001/ [Suspect]
     Route: 048
     Dates: start: 20080301, end: 20080401
  6. ALLEGRA [Suspect]
     Indication: RHINITIS
     Route: 048
     Dates: start: 20080301
  7. PONDERA [Suspect]
     Indication: DEPRESSION
     Route: 048
     Dates: start: 20060401, end: 20061214
  8. PONDERA [Suspect]
     Indication: PHOBIA
     Route: 048
     Dates: start: 20060401, end: 20061214
  9. RIVOTRIL [Suspect]
     Indication: ANXIETY
     Route: 048
  10. SYNTHROID [Suspect]
     Indication: HYPOTHYROIDISM
     Route: 048
     Dates: start: 20010101
  11. PAROXETINE HCL [Suspect]
     Indication: DEPRESSION
     Route: 048
     Dates: start: 20070901
  12. NOCTAL                             /00425901/ [Suspect]
     Indication: INSOMNIA
     Route: 048
     Dates: start: 20040901
  13. VACCINES [Suspect]
     Indication: CANDIDIASIS
     Route: 023
  14. BUDESONIDE [Suspect]
     Route: 045
     Dates: start: 20080301
  15. RINOSORO                           /01466401/ [Suspect]
     Dosage: DOSE: ONCE A DAY
     Route: 045
     Dates: start: 20080301
  16. RIVOTRIL [Concomitant]
     Indication: PHOBIA
     Route: 048
     Dates: start: 20030101, end: 20050101
  17. RIVOTRIL [Concomitant]
     Route: 048
     Dates: start: 20040101
  18. RIVOTRIL [Concomitant]
     Route: 048
     Dates: start: 20030101, end: 20050101
  19. RIVOTRIL [Concomitant]
     Route: 048
     Dates: start: 20040101
  20. BETAGAN [Concomitant]
     Indication: GLAUCOMA
     Dosage: DOSE: UNK
     Route: 047
     Dates: start: 20010101
  21. LORATADINE [Concomitant]
     Route: 048
  22. VACCINES [Concomitant]
     Route: 023
     Dates: start: 20071212
  23. FUROSEMIDE [Concomitant]
     Indication: URINARY RETENTION
     Route: 048
     Dates: start: 20050101
  24. ROHYPNOL [Concomitant]
     Indication: INSOMNIA
     Route: 048
     Dates: start: 20071001
  25. RIVOTRIL [Concomitant]
     Route: 048
     Dates: start: 20071001

REACTIONS (23)
  - ABDOMINAL DISTENSION [None]
  - ANXIETY [None]
  - ASTHENIA [None]
  - BLOOD PRESSURE DECREASED [None]
  - BLOOD PROLACTIN INCREASED [None]
  - BREAST PAIN [None]
  - BREAST SWELLING [None]
  - DRUG DEPENDENCE [None]
  - DYSURIA [None]
  - FLUID RETENTION [None]
  - GALACTORRHOEA [None]
  - HEADACHE [None]
  - HYPOAESTHESIA [None]
  - INCREASED APPETITE [None]
  - INSOMNIA [None]
  - MENSTRUATION IRREGULAR [None]
  - MUSCULOSKELETAL PAIN [None]
  - PLATELET COUNT DECREASED [None]
  - TACHYCARDIA [None]
  - THINKING ABNORMAL [None]
  - TORTICOLLIS [None]
  - URINARY RETENTION [None]
  - WEIGHT INCREASED [None]
